FAERS Safety Report 4562678-1 (Version None)
Quarter: 2005Q1

REPORT INFORMATION
  Report Type: 
  Country: None (occurrence: None)
  Receive Date: 20050124
  Receipt Date: 20050110
  Transmission Date: 20050727
  Serious: Yes (Hospitalization)
  Sender: FDA-Public Use
  Company Number: 2005015351

PATIENT
  Age: 86 Year
  Sex: Female

DRUGS (4)
  1. ARTHROTEC [Suspect]
     Indication: NECK PAIN
     Dosage: (150/400 MG DAILY), ORAL
     Route: 048
     Dates: start: 20041112, end: 20041221
  2. ACETYLSALICYLIC ACID [Suspect]
     Indication: MYOCARDIAL ISCHAEMIA
     Dosage: 75 MG (75 MG, 1 IN 1 D), ORAL
     Route: 048
     Dates: end: 20041221
  3. ALBUTEROL [Concomitant]
  4. LEVOTHYROXINE SODIUM [Concomitant]

REACTIONS (5)
  - DIARRHOEA [None]
  - DUODENAL ULCER [None]
  - FAECES DISCOLOURED [None]
  - FEELING ABNORMAL [None]
  - HAEMOGLOBIN ABNORMAL [None]
